FAERS Safety Report 18412558 (Version 1)
Quarter: 2020Q4

REPORT INFORMATION
  Report Type: Report from Study
  Country: GB (occurrence: GB)
  Receive Date: 20201022
  Receipt Date: 20201022
  Transmission Date: 20210114
  Serious: Yes (Death, Hospitalization)
  Sender: FDA-Public Use
  Company Number: GB-AMGEN-GBRNI2020169011

PATIENT
  Age: 57 Year
  Sex: Male
  Weight: 45 kg

DRUGS (12)
  1. ETANERCEPT [Suspect]
     Active Substance: ETANERCEPT
     Dosage: 25 MILLIGRAM, 2 TIMES/WK
     Route: 058
     Dates: start: 20040415, end: 20050615
  2. ISONIAZID. [Concomitant]
     Active Substance: ISONIAZID
     Dosage: UNK
  3. FERROUS SULPHATE [FERROUS SULFATE] [Concomitant]
     Active Substance: FERROUS SULFATE
     Dosage: UNK
  4. DIHYDROCODEINE [Concomitant]
     Active Substance: DIHYDROCODEINE
     Dosage: UNK
  5. FUROSEMIDE. [Concomitant]
     Active Substance: FUROSEMIDE
     Dosage: UNK
  6. IBUPROFEN. [Concomitant]
     Active Substance: IBUPROFEN
  7. MOVELAT [ADRENAL CORTICAL EXTRACT;MUCOPOLYSACCHARIDE POLYSULFURIC ACID [Concomitant]
     Dosage: UNK
  8. LACTULOSE. [Concomitant]
     Active Substance: LACTULOSE
  9. OMEPRAZOLE. [Concomitant]
     Active Substance: OMEPRAZOLE
  10. ETANERCEPT [Suspect]
     Active Substance: ETANERCEPT
     Indication: ANKYLOSING SPONDYLITIS
     Dosage: UNK
     Route: 065
  11. SENNA LIQUID EXTRACT [Concomitant]
     Dosage: UNK
  12. GAVISCON [SODIUM ALGINATE;SODIUM BICARBONATE] [Concomitant]
     Active Substance: SODIUM ALGINATE\SODIUM BICARBONATE
     Dosage: UNK

REACTIONS (3)
  - Pulmonary embolism [Fatal]
  - Deep vein thrombosis [Fatal]
  - Surgery [Fatal]

NARRATIVE: CASE EVENT DATE: 20060830
